FAERS Safety Report 5843602-8 (Version None)
Quarter: 2008Q3

REPORT INFORMATION
  Report Type: 
  Country: None (occurrence: None)
  Receive Date: 20080813
  Receipt Date: 20080613
  Transmission Date: 20090109
  Serious: No
  Sender: FDA-Public Use
  Company Number: A0731964A

PATIENT
  Sex: Female

DRUGS (2)
  1. COREG CR [Suspect]
     Dosage: 20MG PER DAY
     Route: 048
     Dates: start: 20080501
  2. TEKTURNA [Concomitant]

REACTIONS (2)
  - HYPOTENSION [None]
  - RHINORRHOEA [None]
